FAERS Safety Report 15405261 (Version 1)
Quarter: 2018Q3

REPORT INFORMATION
  Report Type: Spontaneous
  Country: US (occurrence: US)
  Receive Date: 20180920
  Receipt Date: 20180920
  Transmission Date: 20181010
  Serious: Yes (Other)
  Sender: FDA-Public Use
  Company Number: US-ROCHE-2178870

PATIENT
  Age: 74 Year
  Sex: Female
  Weight: 81.72 kg

DRUGS (1)
  1. XOLAIR [Suspect]
     Active Substance: OMALIZUMAB
     Indication: URTICARIA
     Dosage: ONGOING:YES
     Route: 065
     Dates: start: 201803

REACTIONS (3)
  - Pain [Not Recovered/Not Resolved]
  - Bursitis [Unknown]
  - Insomnia [Unknown]

NARRATIVE: CASE EVENT DATE: 20180826
